FAERS Safety Report 25998953 (Version 2)
Quarter: 2025Q4

REPORT INFORMATION
  Report Type: Spontaneous
  Country: US (occurrence: US)
  Receive Date: 20251105
  Receipt Date: 20251107
  Transmission Date: 20260118
  Serious: Yes (Hospitalization, Other)
  Sender: ROCHE
  Company Number: US-ROCHE-10000422185

PATIENT
  Age: 38 Year
  Sex: Female
  Weight: 99.79 kg

DRUGS (9)
  1. ACTEMRA [Suspect]
     Active Substance: TOCILIZUMAB
     Indication: Rheumatoid arthritis
     Route: 042
  2. ASPIRIN [Concomitant]
     Active Substance: ASPIRIN
     Route: 048
     Dates: start: 20161220
  3. ROSUVASTATIN [Concomitant]
     Active Substance: ROSUVASTATIN
     Route: 048
     Dates: start: 20161220
  4. METOPROLOL [Concomitant]
     Active Substance: METOPROLOL
     Indication: Heart rate increased
     Route: 048
     Dates: start: 202411
  5. AMLODIPINE [Concomitant]
     Active Substance: AMLODIPINE BESYLATE
     Indication: Blood pressure measurement
     Route: 048
  6. CELEBREX [Concomitant]
     Active Substance: CELECOXIB
     Indication: Inflammation
     Dosage: MAY TAKE TWO TIMES A DAY AS NEEDED
     Route: 048
  7. OMEPRAZOLE [Concomitant]
     Active Substance: OMEPRAZOLE
     Indication: Dyspepsia
     Route: 048
  8. CETIRIZINE HYDROCHLORIDE [Concomitant]
     Active Substance: CETIRIZINE HYDROCHLORIDE
     Indication: Seasonal allergy
     Route: 048
  9. HYDROCHLOROTHIAZIDE [Concomitant]
     Active Substance: HYDROCHLOROTHIAZIDE
     Route: 048

REACTIONS (5)
  - Antiphospholipid syndrome [Recovered/Resolved]
  - Atrioventricular block [Not Recovered/Not Resolved]
  - Myocardial necrosis marker increased [Recovered/Resolved]
  - Heart rate increased [Recovered/Resolved]
  - Rheumatoid arthritis [Not Recovered/Not Resolved]

NARRATIVE: CASE EVENT DATE: 20161220
